FAERS Safety Report 16635427 (Version 7)
Quarter: 2024Q2

REPORT INFORMATION
  Report Type: Spontaneous
  Country: ES (occurrence: ES)
  Receive Date: 20190726
  Receipt Date: 20240415
  Transmission Date: 20240716
  Serious: Yes (Life-Threatening, Hospitalization, Other)
  Sender: FDA-Public Use
  Company Number: None

PATIENT
  Age: 75 Year
  Sex: Female

DRUGS (18)
  1. TRAZODONE HYDROCHLORIDE [Interacting]
     Active Substance: TRAZODONE HYDROCHLORIDE
     Indication: Major depression
     Dosage: 100 MG/24H, DOSAGE UNIT FREQUENCY: 100 MG, INTAKE OF DOSE: 100 ,NO. INTAKES PER FREQUENCY UNIT:1
     Route: 048
     Dates: start: 201506
  2. PROPRANOLOL [Suspect]
     Active Substance: PROPRANOLOL HYDROCHLORIDE
     Indication: Hypertension
     Route: 065
  3. HYDROCHLOROTHIAZIDE [Suspect]
     Active Substance: HYDROCHLOROTHIAZIDE
     Indication: Hypertension
     Dosage: UNK DF, UNKNOWN
     Route: 065
  4. SOLIFENACIN [Suspect]
     Active Substance: SOLIFENACIN
     Indication: Product used for unknown indication
     Route: 065
  5. DULOXETINE [Interacting]
     Active Substance: DULOXETINE
     Indication: Major depression
     Dosage: 60 MG/24H
     Route: 065
     Dates: start: 201506
  6. CLOMIPRAMINE [Interacting]
     Active Substance: CLOMIPRAMINE
     Indication: Major depression
     Dosage: 50 MG/24H, DOSAGE UNIT FREQUENCY:50 MG,INTAKE OF DOSE:50 MG,NO. INTAKES PER FREQUENCY UNIT: 1
     Route: 048
     Dates: start: 201408, end: 20150703
  7. LEVOSULPIRIDE [Interacting]
     Active Substance: LEVOSULPIRIDE
     Indication: Major depression
     Dosage: 25 MG/8H,DOSAGE UNIT FREQUENCY:75 MG, INTAKE OF DOSE:25 MG, NO. INTAKES PER FREQUENCY UNIT: 3
     Route: 048
     Dates: start: 201409
  8. SULPIRIDE [Interacting]
     Active Substance: SULPIRIDE
     Dosage: STRENGTH: 50 MG,30 CAPSULES,DOSAGE UNIT FREQUENCY:50 MG,INTAKE OF DOSE: 50 MG
     Route: 048
     Dates: start: 201411
  9. ENALAPRIL [Suspect]
     Active Substance: ENALAPRIL
     Indication: Hypertension
     Route: 065
  10. SULPIRIDE [Suspect]
     Active Substance: SULPIRIDE
     Indication: Major depression
     Dosage: 50 MG/24H
     Route: 065
  11. DILTIAZEM [Suspect]
     Active Substance: DILTIAZEM
     Indication: Hypertension
     Route: 065
  12. METFORMIN [Concomitant]
     Active Substance: METFORMIN HYDROCHLORIDE
     Indication: Type 2 diabetes mellitus
     Route: 065
  13. OMEPRAZOLE [Concomitant]
     Active Substance: OMEPRAZOLE
     Indication: Product used for unknown indication
     Route: 065
  14. ASPIRIN [Concomitant]
     Active Substance: ASPIRIN
     Indication: Product used for unknown indication
     Route: 065
  15. ACETAMINOPHEN [Concomitant]
     Active Substance: ACETAMINOPHEN
     Indication: Product used for unknown indication
     Route: 065
  16. EZETIMIBE [Concomitant]
     Active Substance: EZETIMIBE
     Indication: Dyslipidaemia
     Route: 065
  17. SOLIFENACIN [Concomitant]
     Active Substance: SOLIFENACIN
     Indication: Hypertension
  18. DULOXETINE [Interacting]
     Active Substance: DULOXETINE
     Indication: Major depression
     Dosage: DOSAGE UNIT FREQUENCY:60 MG, INTAKE OF DOSE:60 MG,NO. INTAKES PER FREQUENCY UNIT:1
     Route: 048
     Dates: start: 201406, end: 20150703

REACTIONS (6)
  - Cerebellar syndrome [Unknown]
  - Hyperthermia [Unknown]
  - Blood lactic acid increased [Recovered/Resolved with Sequelae]
  - Drug interaction [Unknown]
  - Serotonin syndrome [Recovered/Resolved]
  - Loss of personal independence in daily activities [Unknown]

NARRATIVE: CASE EVENT DATE: 20150702
